FAERS Safety Report 11849113 (Version 1)
Quarter: 2015Q4

REPORT INFORMATION
  Report Type: Spontaneous
  Country: US (occurrence: None)
  Receive Date: 20151217
  Receipt Date: 20151217
  Transmission Date: 20160305
  Serious: Yes (Other)
  Sender: FDA-Public Use
  Company Number: None

PATIENT
  Age: 33 Year
  Sex: Female
  Weight: 99.8 kg

DRUGS (2)
  1. RIBAVIRIN 200 [Suspect]
     Active Substance: RIBAVIRIN
     Route: 048
     Dates: start: 20151215
  2. VIEKIRA PAK [Suspect]
     Active Substance: DASABUVIR\OMBITASVIR\PARITAPREVIR\RITONAVIR
     Indication: HEPATITIS C
     Dosage: 1 PAK DAILY
     Route: 048
     Dates: start: 20151114

REACTIONS (1)
  - Liver injury [None]

NARRATIVE: CASE EVENT DATE: 20151215
